FAERS Safety Report 20921782 (Version 1)
Quarter: 2022Q2

REPORT INFORMATION
  Report Type: Spontaneous
  Country: US (occurrence: US)
  Receive Date: 20220606
  Receipt Date: 20220606
  Transmission Date: 20220721
  Serious: No
  Sender: FDA-Public Use
  Company Number: US-BRISTOL-MYERS SQUIBB COMPANY-2022-036815

PATIENT
  Age: 68 Year
  Sex: Female

DRUGS (14)
  1. REVLIMID [Suspect]
     Active Substance: LENALIDOMIDE
     Indication: Plasma cell myeloma
     Dosage: FREQUENCY: TAKE 1 CAPSULE BY
     Route: 048
  2. KETOCONAZOLE [Concomitant]
     Active Substance: KETOCONAZOLE
  3. METFORMIN [Concomitant]
     Active Substance: METFORMIN HYDROCHLORIDE
  4. MIRALAX [Concomitant]
     Active Substance: POLYETHYLENE GLYCOL 3350
  5. ONDANSETRON [Concomitant]
     Active Substance: ONDANSETRON
  6. POTASSIUM CHLORIDE [Concomitant]
     Active Substance: POTASSIUM CHLORIDE
  7. LIDODERM [Concomitant]
     Active Substance: LIDOCAINE
  8. CALCIUM 600+D [CALCIUM CARBONATE;COLECALCIFEROL] [Concomitant]
  9. ASPIRIN [Concomitant]
     Active Substance: ASPIRIN
  10. FOLIC ACID [Concomitant]
     Active Substance: FOLIC ACID
  11. SIMETHICONE (DIMETHICONE) [Concomitant]
     Active Substance: DIMETHICONE
  12. ACYCLOVIR [Concomitant]
     Active Substance: ACYCLOVIR
  13. SIMVASTATIN [Concomitant]
     Active Substance: SIMVASTATIN
  14. PANTOPRAZOLE SODIUM [Concomitant]
     Active Substance: PANTOPRAZOLE SODIUM

REACTIONS (1)
  - Inappropriate schedule of product administration [Unknown]
